FAERS Safety Report 17725858 (Version 1)
Quarter: 2020Q2

REPORT INFORMATION
  Report Type: Spontaneous
  Country: CN (occurrence: CN)
  Receive Date: 20200429
  Receipt Date: 20200429
  Transmission Date: 20200714
  Serious: Yes (Other)
  Sender: FDA-Public Use
  Company Number: CN-GLAXOSMITHKLINE-CN2020APC069542

PATIENT
  Age: 43 Year
  Sex: Male

DRUGS (7)
  1. ATORVASTATIN CALCIUM TABLETS [Interacting]
     Active Substance: ATORVASTATIN CALCIUM
     Indication: LIPIDS INCREASED
     Dosage: 20 MG, QD (ONCE A NIGHT)
     Route: 048
  2. AMLODIPINE [Concomitant]
     Active Substance: AMLODIPINE BESYLATE
     Dosage: 5 MG ONCE A DAY
     Route: 048
  3. MECOBALAMIN INJECTION [Concomitant]
     Indication: NEURITIS
     Dosage: 1 MG, ONCE A DAY
     Route: 042
     Dates: start: 201902
  4. ACICLOVIR [Suspect]
     Active Substance: ACYCLOVIR
     Indication: ANTIVIRAL TREATMENT
     Dosage: 0.5 G, BID
     Dates: start: 20190212, end: 20190219
  5. FEBUXOSTAT TABLETS [Interacting]
     Active Substance: FEBUXOSTAT
     Indication: BLOOD URIC ACID INCREASED
     Dosage: 20 MG PER DAY
     Route: 048
  6. VALSARTAN. [Concomitant]
     Active Substance: VALSARTAN
     Indication: HYPERTENSION
     Dosage: UNK
     Route: 048
  7. AMLODIPINE [Concomitant]
     Active Substance: AMLODIPINE BESYLATE
     Indication: HYPERTENSION
     Dosage: UNK
     Route: 048

REACTIONS (6)
  - Drug interaction [Unknown]
  - Hepatic enzyme increased [Recovering/Resolving]
  - Alanine aminotransferase increased [Recovering/Resolving]
  - Drug-induced liver injury [Recovering/Resolving]
  - Hepatic function abnormal [Recovering/Resolving]
  - Aspartate aminotransferase increased [Recovering/Resolving]

NARRATIVE: CASE EVENT DATE: 20190219
